FAERS Safety Report 8450905-X (Version None)
Quarter: 2012Q2

REPORT INFORMATION
  Report Type: 
  Country: None (occurrence: None)
  Receive Date: 20120620
  Receipt Date: 20120614
  Transmission Date: 20120825
  Serious: Yes (Death, Hospitalization)
  Sender: FDA-Public Use
  Company Number: DE-SANOFI-AVENTIS-2012SA005133

PATIENT
  Age: 65 Year
  Sex: Female
  Weight: 86 kg

DRUGS (11)
  1. METOCLOPRAMIDE [Concomitant]
     Dates: start: 20100504, end: 20100722
  2. BISOPROLOL FUMARATE [Concomitant]
     Dates: start: 20100626, end: 20100722
  3. DOCETAXEL [Suspect]
     Dosage: DOSE: 60MG/M2
     Route: 042
     Dates: start: 20100504
  4. TRASTUZUMAB [Suspect]
     Dosage: DOSE LEVEL: 6MG/KGFORM: VIALS
     Route: 042
     Dates: start: 20100504, end: 20100722
  5. EMEND [Concomitant]
     Dates: start: 20100504, end: 20100722
  6. DOCETAXEL [Suspect]
     Dosage: DOSE REDUCED
     Route: 042
     Dates: start: 20100615, end: 20100722
  7. CARBOPLATIN [Suspect]
     Dosage: FORM: VIALSDOSE LEVEL: 5 AUC
     Route: 042
     Dates: start: 20100504
  8. DEXAMETHASONE [Concomitant]
     Dates: start: 20100525, end: 20100722
  9. CARBOPLATIN [Suspect]
     Dosage: DOSE REDUCED
     Route: 042
     Dates: start: 20100615, end: 20100722
  10. ONDANSETRON [Concomitant]
     Dates: start: 20100504, end: 20100722
  11. LOPERAMIDE [Concomitant]
     Dosage: DOSE: TDD MG
     Dates: start: 20100715, end: 20100722

REACTIONS (1)
  - NEUTROPENIA [None]
